FAERS Safety Report 5614984-7 (Version None)
Quarter: 2008Q1

REPORT INFORMATION
  Report Type: 
  Country: None (occurrence: None)
  Receive Date: 20080206
  Receipt Date: 20080129
  Transmission Date: 20080703
  Serious: Yes (Hospitalization, Other)
  Sender: FDA-Public Use
  Company Number: PHBS2008BR01692

PATIENT
  Age: 51 Year
  Sex: Female
  Weight: 76 kg

DRUGS (5)
  1. METICORTEN [Concomitant]
     Dosage: 20 MG, QD
  2. FORASEQ [Suspect]
     Indication: CHRONIC OBSTRUCTIVE PULMONARY DISEASE
     Dosage: 2 DF, Q12H
     Dates: start: 20070101
  3. LASIX [Concomitant]
     Dosage: 40 MG, QD
     Route: 048
  4. CARDIZEM [Concomitant]
     Dosage: 30 MG, Q8H
  5. ADAQUETONIO [Concomitant]
     Dosage: 25 MG, QD

REACTIONS (4)
  - INFLUENZA [None]
  - LUNG INFECTION [None]
  - PNEUMONIA [None]
  - SEPSIS [None]
